FAERS Safety Report 24624355 (Version 4)
Quarter: 2025Q1

REPORT INFORMATION
  Report Type: Spontaneous
  Country: JP (occurrence: JP)
  Receive Date: 20241115
  Receipt Date: 20250211
  Transmission Date: 20250409
  Serious: Yes (Death, Other)
  Sender: MALLINCKRODT
  Company Number: JP-MALLINCKRODT-MNK202406933

PATIENT
  Age: 60 Year
  Sex: Female
  Weight: 29 kg

DRUGS (2)
  1. UVADEX [Suspect]
     Active Substance: METHOXSALEN
     Indication: Chronic graft versus host disease
     Route: 050
  2. ANTICOAGULANT CITRATE DEXTROSE SOLUTION (ACD) NOS [Concomitant]
     Active Substance: CITRIC ACID MONOHYDRATE\DEXTROSE\SODIUM CITRATE
     Indication: Anticoagulant therapy

REACTIONS (5)
  - Death [Fatal]
  - General physical health deterioration [Unknown]
  - Haematocrit decreased [Unknown]
  - Complication associated with device [Unknown]
  - Oxygen saturation decreased [Unknown]

NARRATIVE: CASE EVENT DATE: 20241105
